FAERS Safety Report 19314472 (Version 1)
Quarter: 2021Q2

REPORT INFORMATION
  Report Type: Spontaneous
  Country: US (occurrence: US)
  Receive Date: 20210527
  Receipt Date: 20210527
  Transmission Date: 20210717
  Serious: No
  Sender: FDA-Public Use
  Company Number: US-ADVANZ PHARMA-202105003767

PATIENT

DRUGS (7)
  1. ORENCIA [Concomitant]
     Active Substance: ABATACEPT
  2. ENBREL [Concomitant]
     Active Substance: ETANERCEPT
  3. HYDROXYCHLOROQUINE [Suspect]
     Active Substance: HYDROXYCHLOROQUINE
     Indication: PRODUCT USED FOR UNKNOWN INDICATION
     Dosage: UNK, PLAQUENIL
  4. HUMIRA [Concomitant]
     Active Substance: ADALIMUMAB
  5. METHOTREXATE. [Concomitant]
     Active Substance: METHOTREXATE
     Dosage: UNK
  6. REMICADE [Concomitant]
     Active Substance: INFLIXIMAB
  7. ARAVA [Concomitant]
     Active Substance: LEFLUNOMIDE

REACTIONS (1)
  - Diarrhoea [Unknown]
